FAERS Safety Report 12261986 (Version 1)
Quarter: 2016Q2

REPORT INFORMATION
  Report Type: Spontaneous
  Country: IN (occurrence: IN)
  Receive Date: 20160413
  Receipt Date: 20160413
  Transmission Date: 20160815
  Serious: Yes (Hospitalization)
  Sender: FDA-Public Use
  Company Number: IN-CIPLA LTD.-2016IN03676

PATIENT

DRUGS (2)
  1. GEMCITABINE [Suspect]
     Active Substance: GEMCITABINE\GEMCITABINE HYDROCHLORIDE
     Indication: GALLBLADDER CANCER METASTATIC
     Dosage: 1400 MG, ON DAY1 AND DAY 8 OVER 30 MIN, REPEATED OVER EVERY 3 WEEKS FOR A TOTAL OF SIX CYCL
  2. CISPLATIN. [Suspect]
     Active Substance: CISPLATIN
     Indication: GALLBLADDER CANCER METASTATIC
     Dosage: UNK, ON DAY 1 OVER 60 MIN INFUSION REPEATED OVER EVERY 3 WEEKS FOR A TOTAL OF SIX CYCLES

REACTIONS (2)
  - Atrioventricular block first degree [Unknown]
  - Supraventricular tachycardia [Unknown]
